FAERS Safety Report 11192745 (Version 1)
Quarter: 2015Q2

REPORT INFORMATION
  Report Type: Spontaneous
  Country: US (occurrence: US)
  Receive Date: 20150616
  Receipt Date: 20150616
  Transmission Date: 20150821
  Serious: Yes (Other)
  Sender: FDA-Public Use
  Company Number: US-SA-2015SA082525

PATIENT
  Sex: Female

DRUGS (7)
  1. ATROPINE [Concomitant]
     Active Substance: ATROPINE
     Dosage: 1 MG ATROPINE IVP
     Route: 042
     Dates: start: 201311
  2. OXALIPLATIN. [Suspect]
     Active Substance: OXALIPLATIN
     Indication: PANCREATIC CARCINOMA METASTATIC
     Dosage: INFUSION, OVER 2 HOURS
     Route: 065
     Dates: start: 201311, end: 201311
  3. LEUCOVORIN [Concomitant]
     Active Substance: LEUCOVORIN
     Indication: PANCREATIC CARCINOMA METASTATIC
     Dates: start: 201311, end: 201311
  4. DEXAMETHASONE. [Concomitant]
     Active Substance: DEXAMETHASONE
     Indication: PREMEDICATION
     Dates: start: 201311
  5. IRINOTECAN [Suspect]
     Active Substance: IRINOTECAN
     Indication: PANCREATIC CARCINOMA METASTATIC
     Dosage: INFUSION
     Route: 065
     Dates: start: 201311, end: 201311
  6. 5-FU [Concomitant]
     Active Substance: FLUOROURACIL
     Indication: PANCREATIC CARCINOMA METASTATIC
     Dosage: OVER 48-HOURS CONTINUOUS INFUSION
     Dates: start: 201311, end: 201311
  7. ONDANSETRON [Concomitant]
     Active Substance: ONDANSETRON
     Indication: PREMEDICATION
     Route: 042
     Dates: start: 201311

REACTIONS (5)
  - Aphasia [Recovered/Resolved]
  - Paralysis [Recovered/Resolved]
  - Asthenia [Recovered/Resolved]
  - Product use issue [Unknown]
  - Aphasia [Recovered/Resolved]

NARRATIVE: CASE EVENT DATE: 201311
